FAERS Safety Report 15400678 (Version 3)
Quarter: 2018Q4

REPORT INFORMATION
  Report Type: Spontaneous
  Country: DE (occurrence: DE)
  Receive Date: 20180919
  Receipt Date: 20181018
  Transmission Date: 20190204
  Serious: Yes (Other)
  Sender: FDA-Public Use
  Company Number: DE-SUN PHARMACEUTICAL INDUSTRIES LTD-2018RR-182887

PATIENT
  Age: 52 Year
  Sex: Female

DRUGS (6)
  1. SUMATRIPTAN-HORMOSAN INJECT 6 MG/0.5 ML INJEKTIONSL?SUNG [Suspect]
     Active Substance: SUMATRIPTAN SUCCINATE
     Dosage: AS NEEDED IN CASE OF CLUSTER ATTACK
     Route: 058
  2. SUMATRIPTAN-HORMOSAN INJECT 6 MG/0.5 ML INJEKTIONSL?SUNG [Suspect]
     Active Substance: SUMATRIPTAN SUCCINATE
     Dosage: AS NEEDED IN CASE OF CLUSTER ATTACK
     Route: 058
  3. NOVALGIN (METAMIZOLE SODIUM) [Concomitant]
     Active Substance: METAMIZOLE SODIUM
     Indication: CLUSTER HEADACHE
     Dosage: UNK UNK, PRN
     Route: 065
  4. SUMATRIPTAN. [Concomitant]
     Active Substance: SUMATRIPTAN
     Indication: CLUSTER HEADACHE
     Dosage: UNK UNK, PRN
     Route: 065
  5. CORTISONE [Concomitant]
     Active Substance: CORTISONE\HYDROCORTISONE
     Indication: PRODUCT USED FOR UNKNOWN INDICATION
     Dosage: FOR SEVERAL DAYS
     Route: 065
  6. SUMATRIPTAN-HORMOSAN INJECT 6 MG/0.5 ML INJEKTIONSL?SUNG [Suspect]
     Active Substance: SUMATRIPTAN SUCCINATE
     Indication: CLUSTER HEADACHE
     Dosage: AS NEEDED IN CASE OF CLUSTER ATTACK
     Route: 058

REACTIONS (4)
  - Injection site haemorrhage [Unknown]
  - Haematoma [Not Recovered/Not Resolved]
  - Device effect incomplete [Unknown]
  - Malaise [Unknown]

NARRATIVE: CASE EVENT DATE: 20180821
